FAERS Safety Report 12947970 (Version 1)
Quarter: 2016Q4

REPORT INFORMATION
  Report Type: Spontaneous
  Country: US (occurrence: US)
  Receive Date: 20161117
  Receipt Date: 20161117
  Transmission Date: 20170207
  Serious: No
  Sender: FDA-Public Use
  Company Number: US-B.I. PHARMACEUTICALS,INC./RIDGEFIELD-2016-BI-077286

PATIENT
  Sex: Male

DRUGS (5)
  1. COMBIVENT [Suspect]
     Active Substance: ALBUTEROL SULFATE\IPRATROPIUM BROMIDE
     Indication: EMPHYSEMA
     Dosage: DAILY DOSE: ONE INHALATION 4 TIMES A DAY; NOT MORE THAN 6 IN 24 HOURS;  FORM STRENGTH: 20 MCG / 100
     Route: 055
     Dates: start: 201312
  2. NORTRIPTYLINE [Concomitant]
     Active Substance: NORTRIPTYLINE
     Indication: PRODUCT USED FOR UNKNOWN INDICATION
  3. NORCO [Concomitant]
     Active Substance: ACETAMINOPHEN\HYDROCODONE BITARTRATE
     Indication: PRODUCT USED FOR UNKNOWN INDICATION
  4. PRESERA [Concomitant]
     Indication: PRODUCT USED FOR UNKNOWN INDICATION
  5. COMBIVENT [Suspect]
     Active Substance: ALBUTEROL SULFATE\IPRATROPIUM BROMIDE
     Dosage: DOSE: MORE THAN 6 PUFFS IN 24 HOURS,  FORM STRENGTH: 20 MCG / 100 MCG
     Route: 055

REACTIONS (2)
  - Medication error [Unknown]
  - Dyspnoea [Unknown]
